FAERS Safety Report 11048213 (Version 1)
Quarter: 2015Q2

REPORT INFORMATION
  Report Type: Spontaneous
  Country: US (occurrence: US)
  Receive Date: 20150420
  Receipt Date: 20150420
  Transmission Date: 20150821
  Serious: No
  Sender: FDA-Public Use
  Company Number: US-ABBVIE-14P-163-1259525-00

PATIENT
  Age: 6 Year
  Sex: Female
  Weight: 37.23 kg

DRUGS (1)
  1. LUPRON DEPOT-PED [Suspect]
     Active Substance: LEUPROLIDE ACETATE
     Indication: PRECOCIOUS PUBERTY
     Dates: start: 201406

REACTIONS (3)
  - Pyrexia [Not Recovered/Not Resolved]
  - Injection site erythema [Not Recovered/Not Resolved]
  - Injection site oedema [Not Recovered/Not Resolved]

NARRATIVE: CASE EVENT DATE: 20140709
